FAERS Safety Report 9323022 (Version 2)
Quarter: 2014Q1

REPORT INFORMATION
  Report Type: Spontaneous
  Country: US (occurrence: US)
  Receive Date: 20130603
  Receipt Date: 20140218
  Transmission Date: 20141002
  Serious: Yes (Other)
  Sender: FDA-Public Use
  Company Number: US-B.I. PHARMACEUTICALS,INC./RIDGEFIELD-2013-BI-14875BP

PATIENT
  Sex: Male
  Weight: 93.44 kg

DRUGS (12)
  1. PRADAXA [Suspect]
     Indication: ATRIAL FIBRILLATION
     Dosage: 300 MG
     Route: 048
     Dates: start: 20110318, end: 20110928
  2. AMBIEN [Concomitant]
     Route: 048
  3. RANITIDINE [Concomitant]
     Dosage: 300 MG
     Route: 048
  4. SIMVASTATIN [Concomitant]
     Dosage: 40 MG
     Route: 048
  5. CARDURA [Concomitant]
     Dosage: 4 MG
     Route: 048
  6. DOCUSATE SODIUM [Concomitant]
     Route: 048
  7. POTASSIUM CHLORIDE [Concomitant]
     Dosage: 40 MEQ
  8. ASPIRIN [Concomitant]
     Dosage: 81 MG
     Route: 048
  9. TOPROL XL [Concomitant]
     Dosage: 100 MG
     Route: 048
  10. ALPRAZOLAM [Concomitant]
  11. LISINOPRIL [Concomitant]
     Dosage: 20 MG
     Route: 048
  12. DOXAZOSIN [Concomitant]
     Dosage: 8 MG
     Route: 048

REACTIONS (5)
  - Gastrointestinal haemorrhage [Unknown]
  - Haematuria [Unknown]
  - Dysuria [Unknown]
  - Thrombocytopenia [Unknown]
  - Epistaxis [Unknown]
